FAERS Safety Report 5247816-X (Version None)
Quarter: 2007Q1

REPORT INFORMATION
  Report Type: 
  Country: None (occurrence: None)
  Receive Date: 20070227
  Receipt Date: 20070227
  Transmission Date: 20070707
  Serious: Yes (Death, Life-Threatening, Hospitalization)
  Sender: FDA-Public Use
  Company Number: None

PATIENT
  Age: 85 Year
  Sex: Female

DRUGS (17)
  1. HEPARIN [Suspect]
     Dosage: IV DRIP
     Route: 041
     Dates: start: 20070118, end: 20070119
  2. ASPIRIN [Suspect]
     Indication: CORONARY ARTERY DISEASE
     Dosage: 81 MG DAILY PO
     Route: 048
  3. ASPIRIN [Concomitant]
  4. CLOPIDOGREL [Concomitant]
  5. PRILOSEC [Concomitant]
  6. SIMVASTATIN [Concomitant]
  7. POTASSIUM CHLORIDE [Concomitant]
  8. MILK OF MAGNESIA [Concomitant]
  9. AUGMENTIN [Concomitant]
  10. AMANTADINE HCL [Concomitant]
  11. SINEMET [Concomitant]
  12. COMBIVENT MDI [Concomitant]
  13. LASIX [Concomitant]
  14. HYDRALAZINE HCL [Concomitant]
  15. DIGOXIN [Concomitant]
  16. NITROGLYCERIN [Concomitant]
  17. TYLENOL [Concomitant]

REACTIONS (5)
  - ACTIVATED PARTIAL THROMBOPLASTIN TIME PROLONGED [None]
  - GASTROINTESTINAL HAEMORRHAGE [None]
  - HYPOTENSION [None]
  - LOSS OF CONSCIOUSNESS [None]
  - SUBDURAL HAEMATOMA [None]
